FAERS Safety Report 21818932 (Version 1)
Quarter: 2023Q1

REPORT INFORMATION
  Report Type: Spontaneous
  Country: IT (occurrence: IT)
  Receive Date: 20230104
  Receipt Date: 20230104
  Transmission Date: 20230418
  Serious: Yes (Hospitalization)
  Sender: FDA-Public Use
  Company Number: None

PATIENT
  Age: 79 Year
  Sex: Male

DRUGS (9)
  1. RIVAROXABAN [Suspect]
     Active Substance: RIVAROXABAN
     Indication: Atrial fibrillation
     Dosage: XARELTO 20MG, 1CP ORE 12
     Route: 048
     Dates: start: 20211006, end: 20220926
  2. LORAZEPAM [Concomitant]
     Active Substance: LORAZEPAM
     Dosage: LORAZEPAM 1MG, 1/2CP ALLA SERA
     Route: 048
  3. ALLOPURINOL [Concomitant]
     Active Substance: ALLOPURINOL
     Dosage: ZYLORIC 300MG, 1/2CP ALLA MATTINA
     Route: 048
  4. BISOPROLOL FUMARATE [Concomitant]
     Active Substance: BISOPROLOL FUMARATE
     Dosage: BISOPROLOLO 1,25MG, 1CP/DIE
     Route: 048
  5. TRESIBA [Concomitant]
     Active Substance: INSULIN DEGLUDEC
     Indication: Type 2 diabetes mellitus
     Dosage: TRESIBA 100UI/ML, 10UI ALLA MATTINA
     Route: 058
  6. OMEPRAZOLE [Concomitant]
     Active Substance: OMEPRAZOLE
     Dosage: OMEPRAZOLO 20MG, 1CP/DIE
     Route: 048
  7. LEUPROLIDE ACETATE [Concomitant]
     Active Substance: LEUPROLIDE ACETATE
     Indication: Prostate cancer
     Route: 058
  8. ATORVASTATIN [Concomitant]
     Active Substance: ATORVASTATIN
     Dosage: TORVAST 20MG, 1CP ORE 20
     Route: 048
  9. METFORMIN HYDROCHLORIDE [Concomitant]
     Active Substance: METFORMIN HYDROCHLORIDE
     Indication: Type 2 diabetes mellitus
     Dosage: METFORMINA 1000MG: 1/2CP ALLA MATTINA, 1CP A MEZZOGIORNO, 1/2CP ALLA SERA
     Route: 048

REACTIONS (1)
  - Anaemia [Recovering/Resolving]

NARRATIVE: CASE EVENT DATE: 20220926
